FAERS Safety Report 5313849-8 (Version None)
Quarter: 2007Q2

REPORT INFORMATION
  Report Type: 
  Country: None (occurrence: None)
  Receive Date: 20070501
  Receipt Date: 20070426
  Transmission Date: 20071010
  Serious: Yes (Hospitalization)
  Sender: FDA-Public Use
  Company Number: JP-JPN-A200701460

PATIENT
  Age: 14 Year
  Sex: Male
  Weight: 57.8 kg

DRUGS (6)
  1. RELENZA [Suspect]
     Indication: INFLUENZA
     Dosage: 10MG TWICE PER DAY
     Route: 055
     Dates: start: 20070322, end: 20070323
  2. CHINESE MEDICINE [Suspect]
     Indication: NASOPHARYNGITIS
     Route: 048
     Dates: start: 20070322, end: 20070325
  3. ASVERIN [Suspect]
     Indication: COUGH
     Route: 048
     Dates: start: 20070322, end: 20070325
  4. DEQUALINIUM CHLORIDE [Suspect]
     Indication: INFLUENZA
     Dates: start: 20070325
  5. CALONAL [Concomitant]
     Indication: INFLUENZA
     Route: 065
     Dates: start: 20070322, end: 20070322
  6. CLARITHROMYCIN [Concomitant]
     Indication: INFLUENZA
     Route: 048
     Dates: start: 20070322, end: 20070325

REACTIONS (3)
  - DEPRESSED LEVEL OF CONSCIOUSNESS [None]
  - HALLUCINATION [None]
  - PYREXIA [None]
